FAERS Safety Report 10732599 (Version 1)
Quarter: 2015Q1

REPORT INFORMATION
  Report Type: Spontaneous
  Country: US (occurrence: None)
  Receive Date: 20150121
  Receipt Date: 20150121
  Transmission Date: 20150721
  Serious: Yes (Other)
  Sender: FDA-Public Use
  Company Number: KAD201412-001603

PATIENT
  Age: 56 Year
  Sex: Female
  Weight: 63.5 kg

DRUGS (3)
  1. RIBAVIRIN (RIBAVIRIN) [Suspect]
     Active Substance: RIBAVIRIN
     Indication: HEPATITIS C
     Dosage: TABLET, 2X200 MG AM AND 3X200 MG PM, ORAL
     Route: 048
     Dates: start: 20141116
  2. SOVALDI [Suspect]
     Active Substance: SOFOSBUVIR
     Indication: HEPATITIS C
     Route: 048
     Dates: start: 20141116
  3. NADOLOL (NADOLOL) [Suspect]
     Active Substance: NADOLOL
     Indication: HYPERTENSION
     Route: 048
     Dates: start: 20140501

REACTIONS (2)
  - Retinal vein occlusion [None]
  - Retinal haemorrhage [None]

NARRATIVE: CASE EVENT DATE: 20141201
